FAERS Safety Report 15853723 (Version 1)
Quarter: 2019Q1

REPORT INFORMATION
  Report Type: Spontaneous
  Country: US (occurrence: US)
  Receive Date: 20190121
  Receipt Date: 20190121
  Transmission Date: 20190417
  Serious: Yes (Hospitalization)
  Sender: FDA-Public Use
  Company Number: None

PATIENT
  Age: 53 Year
  Sex: Female

DRUGS (20)
  1. LEUCOVOR [Concomitant]
  2. XANAX [Concomitant]
     Active Substance: ALPRAZOLAM
  3. MULTIVIT/FL [Concomitant]
  4. FOLIC ACID. [Concomitant]
     Active Substance: FOLIC ACID
  5. MELATONIN [Concomitant]
     Active Substance: MELATONIN
  6. PREDNISONE. [Concomitant]
     Active Substance: PREDNISONE
  7. VITAMIN E [Concomitant]
     Active Substance: .ALPHA.-TOCOPHEROL
  8. VITAMIN D [Concomitant]
     Active Substance: CHOLECALCIFEROL
  9. ELMIRON [Concomitant]
     Active Substance: PENTOSAN POLYSULFATE SODIUM
  10. PROZAC [Concomitant]
     Active Substance: FLUOXETINE HYDROCHLORIDE
  11. SULFASALAZINE. [Concomitant]
     Active Substance: SULFASALAZINE
  12. ASMANEX [Concomitant]
     Active Substance: MOMETASONE FUROATE
  13. MACROBID [Concomitant]
     Active Substance: NITROFURANTOIN\NITROFURANTOIN MONOHYDRATE
  14. OMEPRAZOLE. [Concomitant]
     Active Substance: OMEPRAZOLE
  15. PLAQUENIL [Concomitant]
     Active Substance: HYDROXYCHLOROQUINE SULFATE
  16. TRAMADOL. [Concomitant]
     Active Substance: TRAMADOL
  17. ENBREL [Suspect]
     Active Substance: ETANERCEPT
     Indication: RHEUMATOID ARTHRITIS
     Dosage: ?          OTHER FREQUENCY:ONCE WEEKLY;?
     Route: 058
     Dates: start: 20160721
  18. FLUCONAZOLE. [Concomitant]
     Active Substance: FLUCONAZOLE
  19. HYDROCODONE BITARTRATE AND ACETAMINOPHEN [Concomitant]
     Active Substance: ACETAMINOPHEN\HYDROCODONE BITARTRATE
  20. SYNTHROID [Concomitant]
     Active Substance: LEVOTHYROXINE SODIUM

REACTIONS (2)
  - Colonoscopy [None]
  - Therapy cessation [None]

NARRATIVE: CASE EVENT DATE: 20181201
